FAERS Safety Report 19012124 (Version 1)
Quarter: 2021Q1

REPORT INFORMATION
  Report Type: Spontaneous
  Country: US (occurrence: US)
  Receive Date: 20210315
  Receipt Date: 20210315
  Transmission Date: 20210420
  Serious: No
  Sender: FDA-Public Use
  Company Number: None

PATIENT
  Sex: Female

DRUGS (1)
  1. AUSTEDO [Suspect]
     Active Substance: DEUTETRABENAZINE
     Indication: BIPOLAR DISORDER
     Route: 048
     Dates: start: 20201107

REACTIONS (2)
  - Therapeutic product effect decreased [None]
  - Dyskinesia [None]
